FAERS Safety Report 6686605-6 (Version None)
Quarter: 2010Q2

REPORT INFORMATION
  Report Type: 
  Country: None (occurrence: None)
  Receive Date: 20100419
  Receipt Date: 20100412
  Transmission Date: 20101027
  Serious: Yes (Other)
  Sender: FDA-Public Use
  Company Number: JP-ROCHE-697708

PATIENT
  Sex: Male

DRUGS (1)
  1. ROCEPHIN [Suspect]
     Indication: BACTERIAL INFECTION
     Route: 042
     Dates: start: 20100407, end: 20100407

REACTIONS (2)
  - DRUG ERUPTION [None]
  - PHARYNGEAL OEDEMA [None]
